FAERS Safety Report 19906072 (Version 2)
Quarter: 2022Q1

REPORT INFORMATION
  Report Type: Spontaneous
  Country: FR (occurrence: FR)
  Receive Date: 20211001
  Receipt Date: 20220302
  Transmission Date: 20220423
  Serious: Yes (Disabling)
  Sender: FDA-Public Use
  Company Number: None

PATIENT
  Age: 71 Year
  Sex: Female
  Weight: 43 kg

DRUGS (3)
  1. CISPLATIN [Suspect]
     Active Substance: CISPLATIN
     Indication: Squamous cell carcinoma
     Dosage: 40 MG
     Route: 041
     Dates: start: 20210629, end: 20210728
  2. COMIRNATY [Concomitant]
     Active Substance: TOZINAMERAN
     Indication: COVID-19 immunisation
     Dosage: 1 DF, DISPERSION TO DILUTE FOR INJECTION. COVID-19 MRNA VACCINE (MODIFIED NUCLEOSIDE)
     Route: 030
     Dates: start: 20210910, end: 20210910
  3. OXALIPLATIN [Concomitant]
     Active Substance: OXALIPLATIN
     Indication: Squamous cell carcinoma
     Dosage: 110 MCG
     Route: 041
     Dates: start: 20210824

REACTIONS (2)
  - Deafness bilateral [Recovered/Resolved]
  - Condition aggravated [Recovered/Resolved]

NARRATIVE: CASE EVENT DATE: 20210911
